FAERS Safety Report 23041444 (Version 4)
Quarter: 2023Q4

REPORT INFORMATION
  Report Type: Spontaneous
  Country: CA (occurrence: CA)
  Receive Date: 20231007
  Receipt Date: 20231212
  Transmission Date: 20240109
  Serious: Yes (Hospitalization)
  Sender: FDA-Public Use
  Company Number: CA-CELLTRION INC.-2023CA011063

PATIENT

DRUGS (7)
  1. INFLECTRA [Suspect]
     Active Substance: INFLIXIMAB-DYYB
     Indication: Colitis ulcerative
     Dosage: 330 MG, AT 0,2,6 WEEKS, THEN EVERY 8 WEEKS
     Route: 042
     Dates: start: 20230518
  2. INFLECTRA [Suspect]
     Active Substance: INFLIXIMAB-DYYB
     Dosage: 330 MG, AT 0,2,6 WEEKS, THEN EVERY 8 WEEKS
     Route: 042
     Dates: start: 20230601
  3. INFLECTRA [Suspect]
     Active Substance: INFLIXIMAB-DYYB
     Dosage: 330 MG AFTER 4 WEEKS (INDUCTION W6)
     Route: 042
     Dates: start: 20230628
  4. INFLECTRA [Suspect]
     Active Substance: INFLIXIMAB-DYYB
     Dosage: 330 MG, AFTER 11 WEEKS AND 1 DAY
     Route: 042
     Dates: start: 20230914
  5. INFLECTRA [Suspect]
     Active Substance: INFLIXIMAB-DYYB
     Dosage: 400 MG, EVERY 6 WEEKS
     Route: 042
     Dates: start: 20231031
  6. METHOTREXATE [Concomitant]
     Active Substance: METHOTREXATE
     Dosage: UNK
  7. PREDNISONE [Concomitant]
     Active Substance: PREDNISONE
     Dosage: 1 DF, DOSAGE INFO: UNKNOWN
     Route: 065
     Dates: start: 202304

REACTIONS (4)
  - Condition aggravated [Recovering/Resolving]
  - Drug specific antibody present [Unknown]
  - Balance disorder [Not Recovered/Not Resolved]
  - Off label use [Unknown]

NARRATIVE: CASE EVENT DATE: 20230501
